FAERS Safety Report 10399330 (Version 1)
Quarter: 2014Q1

REPORT INFORMATION
  Report Type: Spontaneous
  Country: US (occurrence: None)
  Receive Date: 20130815
  Receipt Date: 20130815
  Transmission Date: 20141002
  Serious: Yes (Other)
  Sender: FDA-Public Use
  Company Number: ADR-2012-02286

PATIENT
  Sex: Female

DRUGS (1)
  1. LIORESAL INTRATHECAL (BACLOFEN INJECTION) 2000 MCG/ML [Suspect]

REACTIONS (8)
  - Purulent discharge [None]
  - Wound dehiscence [None]
  - Incision site infection [None]
  - Somnolence [None]
  - Escherichia urinary tract infection [None]
  - Pyrexia [None]
  - Implant site swelling [None]
  - Incision site erythema [None]
